FAERS Safety Report 9835062 (Version 1)
Quarter: 2014Q1

REPORT INFORMATION
  Report Type: Spontaneous
  Country: HU (occurrence: HU)
  Receive Date: 20140122
  Receipt Date: 20140122
  Transmission Date: 20141002
  Serious: Yes (Hospitalization)
  Sender: FDA-Public Use
  Company Number: HU-AMGEN-HUNSP2012084982

PATIENT
  Age: 72 Year
  Sex: Female

DRUGS (16)
  1. ENBREL [Suspect]
     Indication: RHEUMATOID ARTHRITIS
     Dosage: 50 MG, 1X/DAY
     Route: 058
     Dates: start: 20100818, end: 20120918
  2. ARAVA [Concomitant]
     Indication: RHEUMATOID ARTHRITIS
     Dosage: 10 MG, 1X/DAY
     Route: 048
     Dates: start: 2006
  3. DICLOFENAC STADA                   /00372302/ [Concomitant]
     Indication: RHEUMATOID ARTHRITIS
     Dosage: 100 MG, 1X/DAY
     Route: 048
     Dates: start: 1986
  4. METYPRED [Concomitant]
     Indication: RHEUMATOID ARTHRITIS
     Dosage: 4 MG, 1X/DAY
     Route: 048
     Dates: start: 2000
  5. PROTELOS [Concomitant]
     Indication: OSTEOPOROSIS
     Dosage: 2 G, 1X/DAY
     Route: 048
     Dates: start: 2000, end: 20121016
  6. NOVIFORM                           /00487101/ [Concomitant]
     Dosage: UNK
     Route: 048
  7. ARBARTAN [Concomitant]
     Dosage: UNK
     Route: 048
  8. ATORVASTATIN [Concomitant]
     Dosage: UNK
     Route: 048
  9. NOLPAZA [Concomitant]
     Dosage: UNK
     Route: 048
  10. SALAZOPYRIN [Concomitant]
     Dosage: UNK
     Route: 048
  11. BRINALDIX [Concomitant]
     Dosage: UNK
     Route: 048
  12. KALIUM-R [Concomitant]
     Dosage: UNK
     Route: 048
  13. TRAMADOL [Concomitant]
     Dosage: UNK
  14. BETALOC                            /00376902/ [Concomitant]
     Dosage: UNK
     Route: 048
  15. NITROMINT [Concomitant]
     Dosage: UNK
     Route: 048
  16. ANDAXIN [Concomitant]
     Dosage: UNK
     Route: 048

REACTIONS (3)
  - Memory impairment [Unknown]
  - Malignant glioma [Not Recovered/Not Resolved]
  - Vomiting [Unknown]
